FAERS Safety Report 12949444 (Version 1)
Quarter: 2016Q4

REPORT INFORMATION
  Report Type: Spontaneous
  Country: RU (occurrence: RU)
  Receive Date: 20161117
  Receipt Date: 20161117
  Transmission Date: 20170207
  Serious: Yes (Death, Other)
  Sender: FDA-Public Use
  Company Number: PHHY2016RU157187

PATIENT

DRUGS (2)
  1. AMOKSIKLAV [Suspect]
     Active Substance: AMOXICILLIN\CLAVULANATE POTASSIUM
     Indication: ASYMPTOMATIC BACTERIURIA
     Dosage: 1 G, BID
     Route: 064
     Dates: start: 20160803
  2. FERRUM LEK [Suspect]
     Active Substance: FERROUS HYDROXIDE
     Indication: PRODUCT USED FOR UNKNOWN INDICATION
     Dosage: 1 DF, BID
     Route: 064

REACTIONS (4)
  - Premature baby death [Fatal]
  - Drug ineffective [Fatal]
  - Foetal exposure during pregnancy [Unknown]
  - Premature baby [Unknown]
